FAERS Safety Report 20940384 (Version 1)
Quarter: 2022Q2

REPORT INFORMATION
  Report Type: Report from Study
  Country: AR (occurrence: AR)
  Receive Date: 20220609
  Receipt Date: 20220609
  Transmission Date: 20220720
  Serious: Yes (Other)
  Sender: FDA-Public Use
  Company Number: AR-NOVARTISPH-NVSC2022AR130165

PATIENT
  Sex: Female

DRUGS (1)
  1. EXFORGE [Suspect]
     Active Substance: AMLODIPINE BESYLATE\VALSARTAN
     Indication: Hypertension
     Dosage: 1 DOSAGE FORM, QD ((5/160) (UNIT NOT MENTIONED)
     Route: 065
     Dates: start: 2009

REACTIONS (9)
  - Arrhythmia [Unknown]
  - Cataract [Unknown]
  - Memory impairment [Unknown]
  - Knee deformity [Unknown]
  - Fall [Unknown]
  - Nervousness [Unknown]
  - Dizziness [Unknown]
  - Fear [Unknown]
  - Hypoacusis [Unknown]
